FAERS Safety Report 25039002 (Version 2)
Quarter: 2025Q3

REPORT INFORMATION
  Report Type: Spontaneous
  Country: EU (occurrence: EU)
  Receive Date: 20250305
  Receipt Date: 20250809
  Transmission Date: 20251021
  Serious: Yes (Other)
  Sender: ALEXION PHARMACEUTICALS
  Company Number: EU-AstraZeneca-2024A210227

PATIENT
  Age: 75 Year
  Sex: Male

DRUGS (1)
  1. DAPAGLIFLOZIN [Suspect]
     Active Substance: DAPAGLIFLOZIN
     Indication: Type 2 diabetes mellitus
     Dosage: 10 MILLIGRAM, QD
     Dates: start: 20240909

REACTIONS (4)
  - Polyuria [Not Recovered/Not Resolved]
  - Renal impairment [Unknown]
  - Micturition urgency [Unknown]
  - Fatigue [Unknown]

NARRATIVE: CASE EVENT DATE: 20240909
